FAERS Safety Report 4938379-4 (Version None)
Quarter: 2006Q1

REPORT INFORMATION
  Report Type: 
  Country: None (occurrence: None)
  Receive Date: 20060306
  Receipt Date: 20060214
  Transmission Date: 20060701
  Serious: Yes (Hospitalization)
  Sender: FDA-Public Use
  Company Number: US200602003062

PATIENT
  Age: 58 Year
  Sex: Female

DRUGS (2)
  1. ZYPREXA [Suspect]
     Indication: SCHIZOPHRENIA
     Dosage: 5 MG, DAILY (1/D), ORAL
     Route: 048
     Dates: start: 19990101, end: 20040101
  2. WELLBUTRIN [Concomitant]

REACTIONS (7)
  - BEDRIDDEN [None]
  - BLOOD TRIGLYCERIDES ABNORMAL [None]
  - DIABETES MELLITUS [None]
  - DYSPNOEA [None]
  - MYOCARDIAL INFARCTION [None]
  - OBESITY [None]
  - WEIGHT LOSS POOR [None]
